FAERS Safety Report 5951066-9 (Version None)
Quarter: 2008Q4

REPORT INFORMATION
  Report Type: 
  Country: None (occurrence: None)
  Receive Date: 20081111
  Receipt Date: 20081111
  Transmission Date: 20090506
  Serious: No
  Sender: FDA-Public Use
  Company Number: None

PATIENT

DRUGS (2)
  1. DULOXETINE [Suspect]
     Indication: DEPRESSION
     Dosage: 30MG BID PO
     Route: 048
     Dates: start: 20081015, end: 20081028
  2. DULOXETINE [Suspect]
     Indication: PAIN
     Dosage: 30MG BID PO
     Route: 048
     Dates: start: 20081015, end: 20081028

REACTIONS (3)
  - CONFUSIONAL STATE [None]
  - DIZZINESS [None]
  - HALLUCINATION [None]
